FAERS Safety Report 5906097-1 (Version None)
Quarter: 2008Q4

REPORT INFORMATION
  Report Type: 
  Country: None (occurrence: None)
  Receive Date: 20081002
  Receipt Date: 20080924
  Transmission Date: 20090506
  Serious: Yes (Hospitalization)
  Sender: FDA-Public Use
  Company Number: PHBS2008AT05657

PATIENT
  Age: 45 Year
  Sex: Female

DRUGS (4)
  1. VOLTAREN [Suspect]
     Indication: UVEITIS
  2. VOLTAREN [Suspect]
     Indication: RETINAL DETACHMENT
  3. ULTRACORTENOL EYE DROPS (NVO) [Suspect]
     Indication: UVEITIS
  4. ULTRACORTENOL EYE DROPS (NVO) [Suspect]
     Indication: RETINAL DETACHMENT

REACTIONS (20)
  - ABNORMAL SENSATION IN EYE [None]
  - ANTERIOR CHAMBER CELL [None]
  - CAT SCRATCH DISEASE [None]
  - CHORIORETINAL ATROPHY [None]
  - CONJUNCTIVAL DISCOLOURATION [None]
  - CONJUNCTIVAL IRRITATION [None]
  - DEPOSIT EYE [None]
  - DERMATITIS ALLERGIC [None]
  - IMMUNOLOGY TEST [None]
  - MACULAR OEDEMA [None]
  - OCULAR HYPERAEMIA [None]
  - OPTIC NEURITIS [None]
  - PHOTOSENSITIVITY REACTION [None]
  - PUPILLARY LIGHT REFLEX TESTS ABNORMAL [None]
  - RETINAL DETACHMENT [None]
  - RETINAL DISORDER [None]
  - RETINAL EXUDATES [None]
  - RETINAL OEDEMA [None]
  - UVEITIS [None]
  - VISUAL ACUITY REDUCED [None]
